FAERS Safety Report 9950731 (Version 1)
Quarter: 2014Q1

REPORT INFORMATION
  Report Type: Spontaneous
  Country: US (occurrence: US)
  Receive Date: 20140304
  Receipt Date: 20140304
  Transmission Date: 20141002
  Serious: No
  Sender: FDA-Public Use
  Company Number: US-AMGEN-USASP2013075368

PATIENT
  Age: 62 Year
  Sex: Male
  Weight: 120.18 kg

DRUGS (5)
  1. ENBREL [Suspect]
     Indication: PRODUCT USED FOR UNKNOWN INDICATION
     Dosage: 50 MG, QWK
     Route: 058
  2. RELAFEN [Concomitant]
     Dosage: 500 MG, UNK
  3. TOPROL [Concomitant]
     Dosage: 100 MG, UNK
  4. CIALIS [Concomitant]
     Dosage: 10 MG, UNK
  5. GLUCOSAMINE + CHONDROITIN          /01430901/ [Concomitant]
     Dosage: UNK

REACTIONS (2)
  - Incorrect product storage [Recovering/Resolving]
  - Injection site pain [Recovering/Resolving]
